FAERS Safety Report 12477530 (Version 1)
Quarter: 2016Q2

REPORT INFORMATION
  Report Type: Spontaneous
  Country: US (occurrence: US)
  Receive Date: 20160617
  Receipt Date: 20160617
  Transmission Date: 20160815
  Serious: No
  Sender: FDA-Public Use
  Company Number: US-ALLERGAN-1655601US

PATIENT
  Sex: Male

DRUGS (1)
  1. VIBERZI [Suspect]
     Active Substance: ELUXADOLINE
     Indication: IRRITABLE BOWEL SYNDROME
     Dosage: 100 MG, BID
     Route: 048
     Dates: start: 201603, end: 201604

REACTIONS (5)
  - Pain in extremity [Recovered/Resolved]
  - Neck pain [Recovered/Resolved]
  - Inappropriate schedule of drug administration [Unknown]
  - Paraesthesia [Recovered/Resolved]
  - Pain [Recovered/Resolved]
